FAERS Safety Report 5081561-9 (Version None)
Quarter: 2006Q3

REPORT INFORMATION
  Report Type: 
  Country: None (occurrence: None)
  Receive Date: 20060811
  Receipt Date: 20060802
  Transmission Date: 20061208
  Serious: Yes (Hospitalization, Other)
  Sender: FDA-Public Use
  Company Number: 234923K06USA

PATIENT
  Age: 60 Year
  Sex: 0

DRUGS (10)
  1. REBIF [Suspect]
     Indication: MULTIPLE SCLEROSIS
     Dosage: 44 MCG, 3 IN 1 WEEKS, SUBCUTANEOUS
     Route: 058
     Dates: start: 20050829
  2. PLAVIX [Concomitant]
  3. ASPIRIN [Concomitant]
  4. PLAQUENIL [Concomitant]
  5. PROTONIX [Concomitant]
  6. SYNTHROID [Concomitant]
  7. NORVASC [Concomitant]
  8. LESCOL (FLUVASTATIN /01224501/) [Concomitant]
  9. FOSAMAX [Concomitant]
  10. TOPROL-XL [Concomitant]

REACTIONS (5)
  - CORONARY ARTERY DISEASE [None]
  - CORONARY ARTERY OCCLUSION [None]
  - DRUG DOSE OMISSION [None]
  - INJECTION SITE ERYTHEMA [None]
  - PAIN [None]
